FAERS Safety Report 17324675 (Version 1)
Quarter: 2020Q1

REPORT INFORMATION
  Report Type: Spontaneous
  Country: US (occurrence: US)
  Receive Date: 20200109
  Receipt Date: 20200109
  Transmission Date: 20200409
  Serious: No
  Sender: FDA-Public Use
  Company Number: None

PATIENT
  Age: 60 Year
  Sex: Male
  Weight: 113.4 kg

DRUGS (3)
  1. ALEVE [Concomitant]
     Active Substance: NAPROXEN SODIUM
  2. AMOXICILLIN AND CLAVULANATE POTASSIUM TABLET, 875MG/125MG [Suspect]
     Active Substance: AMOXICILLIN\CLAVULANATE POTASSIUM
     Indication: TOOTH INFECTION
     Dosage: ?          QUANTITY:20 ;?
     Route: 048
     Dates: start: 20191204, end: 20191209
  3. IBPROPHIN [Concomitant]

REACTIONS (3)
  - Diarrhoea haemorrhagic [None]
  - Diarrhoea [None]
  - Ulcer [None]

NARRATIVE: CASE EVENT DATE: 20191206
